FAERS Safety Report 18547580 (Version 1)
Quarter: 2020Q4

REPORT INFORMATION
  Report Type: Report from Study
  Country: EG (occurrence: EG)
  Receive Date: 20201125
  Receipt Date: 20201125
  Transmission Date: 20210114
  Serious: Yes (Other)
  Sender: FDA-Public Use
  Company Number: NVSC2020EG311364

PATIENT
  Age: 64 Year
  Sex: Female

DRUGS (6)
  1. EPIDRON [Concomitant]
     Indication: PRODUCT USED FOR UNKNOWN INDICATION
     Dosage: UNK (1 CM ON SUNDAY , 1 CM ON WEDNSDAY)
     Route: 065
  2. AFINITOR [Suspect]
     Active Substance: EVEROLIMUS
     Indication: BRAIN CANCER METASTATIC
  3. INSULINE [Concomitant]
     Active Substance: INSULIN NOS
     Indication: PRODUCT USED FOR UNKNOWN INDICATION
     Dosage: UNK
     Route: 065
  4. NOVALDEX [Concomitant]
     Active Substance: TAMOXIFEN
     Indication: PRODUCT USED FOR UNKNOWN INDICATION
     Dosage: UNK
     Route: 065
  5. AFINITOR [Suspect]
     Active Substance: EVEROLIMUS
     Indication: BREAST CANCER METASTATIC
     Dosage: 1 DF, QD (START DATE: TWO WEEKS AGO)
     Route: 065
     Dates: end: 20201112
  6. AFINITOR [Suspect]
     Active Substance: EVEROLIMUS
     Indication: LUNG CANCER METASTATIC

REACTIONS (5)
  - Nausea [Not Recovered/Not Resolved]
  - Decreased appetite [Not Recovered/Not Resolved]
  - Fatigue [Not Recovered/Not Resolved]
  - Mouth ulceration [Not Recovered/Not Resolved]
  - Hypokinesia [Not Recovered/Not Resolved]
